FAERS Safety Report 4689035-1 (Version None)
Quarter: 2005Q2

REPORT INFORMATION
  Report Type: 
  Country: None (occurrence: None)
  Receive Date: 20050613
  Receipt Date: 20050310
  Transmission Date: 20051028
  Serious: Yes (Hospitalization, Other)
  Sender: FDA-Public Use
  Company Number: US-MERCK-0503USA02190

PATIENT
  Age: 65 Year
  Sex: Male
  Weight: 96 kg

DRUGS (8)
  1. VIOXX [Suspect]
     Indication: ARTHRITIS
     Route: 048
     Dates: start: 20000509, end: 20041001
  2. VIOXX [Suspect]
     Route: 048
     Dates: start: 20000504, end: 20041001
  3. VIOXX [Suspect]
     Route: 048
     Dates: start: 20000504, end: 20041001
  4. VIOXX [Suspect]
     Indication: INFLAMMATION
     Route: 048
     Dates: start: 20000509, end: 20041001
  5. VIOXX [Suspect]
     Route: 048
     Dates: start: 20000504, end: 20041001
  6. VIOXX [Suspect]
     Route: 048
     Dates: start: 20000504, end: 20041001
  7. TIAZAC [Concomitant]
     Route: 065
  8. NEXIUM [Concomitant]
     Route: 065

REACTIONS (17)
  - ACROCHORDON EXCISION [None]
  - ANGINA PECTORIS [None]
  - AORTIC VALVE INCOMPETENCE [None]
  - CARDIAC DISORDER [None]
  - CHEST PAIN [None]
  - CORONARY ARTERY STENOSIS [None]
  - EMOTIONAL DISTRESS [None]
  - GASTROOESOPHAGEAL REFLUX DISEASE [None]
  - HYPERTENSION [None]
  - MITRAL VALVE INCOMPETENCE [None]
  - MYOCARDIAL INFARCTION [None]
  - NAIL OPERATION [None]
  - SCAR [None]
  - SUPRAVENTRICULAR EXTRASYSTOLES [None]
  - TRICUSPID VALVE INCOMPETENCE [None]
  - TRIGGER FINGER [None]
  - VENTRICULAR EXTRASYSTOLES [None]
